FAERS Safety Report 5277089-3 (Version None)
Quarter: 2007Q1

REPORT INFORMATION
  Report Type: 
  Country: None (occurrence: None)
  Receive Date: 20070327
  Receipt Date: 20070323
  Transmission Date: 20070707
  Serious: Yes (Death)
  Sender: FDA-Public Use
  Company Number: CA-GLAXOSMITHKLINE-A0644473A

PATIENT

DRUGS (1)
  1. ACYCLOVIR [Suspect]
     Dates: start: 20060110

REACTIONS (1)
  - DEATH [None]
